FAERS Safety Report 7495540-5 (Version None)
Quarter: 2011Q2

REPORT INFORMATION
  Report Type: 
  Country: None (occurrence: None)
  Receive Date: 20110523
  Receipt Date: 20110512
  Transmission Date: 20111010
  Serious: Yes (Hospitalization)
  Sender: FDA-Public Use
  Company Number: US-ASTELLAS-2011US002166

PATIENT
  Sex: Male
  Weight: 72 kg

DRUGS (1)
  1. PROGRAF [Suspect]
     Indication: BONE MARROW TRANSPLANT
     Dosage: 3 MG, UID/QD
     Route: 065
     Dates: start: 20060601

REACTIONS (2)
  - OFF LABEL USE [None]
  - HOSPITALISATION [None]
